FAERS Safety Report 22366945 (Version 1)
Quarter: 2023Q2

REPORT INFORMATION
  Report Type: Spontaneous
  Country: CN (occurrence: CN)
  Receive Date: 20230525
  Receipt Date: 20230525
  Transmission Date: 20230722
  Serious: Yes (Death, Life-Threatening, Other)
  Sender: FDA-Public Use
  Company Number: CN-AMGEN-CHNSP2023084018

PATIENT

DRUGS (6)
  1. FILGRASTIM [Suspect]
     Active Substance: FILGRASTIM
     Indication: Neutropenia
     Dosage: UNK
     Route: 065
  2. DECITABINE [Concomitant]
     Active Substance: DECITABINE
     Indication: Diffuse large B-cell lymphoma
     Dosage: 10 MILLIGRAM, QD
     Route: 042
  3. RITUXIMAB [Concomitant]
     Active Substance: RITUXIMAB
     Indication: Diffuse large B-cell lymphoma
     Dosage: 375 MILLIGRAM/SQ. METER
     Route: 042
  4. CISPLATIN [Concomitant]
     Active Substance: CISPLATIN
     Indication: Diffuse large B-cell lymphoma
     Dosage: 100 MILLIGRAM/SQ. METER
     Route: 042
  5. CYTARABINE [Concomitant]
     Active Substance: CYTARABINE
     Indication: Diffuse large B-cell lymphoma
     Dosage: 2 GRAM PER SQUARE METRE
     Route: 042
  6. DEXAMETHASONE [Concomitant]
     Active Substance: DEXAMETHASONE
     Indication: Diffuse large B-cell lymphoma
     Dosage: 40 MILLIGRAM, QD

REACTIONS (20)
  - Death [Fatal]
  - Diffuse large B-cell lymphoma refractory [Fatal]
  - Infection [Fatal]
  - Multiple organ dysfunction syndrome [Fatal]
  - Unevaluable event [Fatal]
  - White blood cell count decreased [Unknown]
  - Nephropathy toxic [Unknown]
  - Hepatotoxicity [Unknown]
  - Leukopenia [Unknown]
  - Liver injury [Recovered/Resolved]
  - Pneumonia [Unknown]
  - Mucosal inflammation [Unknown]
  - Platelet count decreased [Unknown]
  - Hypoaesthesia [Recovered/Resolved]
  - Thrombocytopenia [Unknown]
  - Insomnia [Recovered/Resolved]
  - Anaemia [Unknown]
  - Nausea [Recovered/Resolved]
  - Diarrhoea [Unknown]
  - Constipation [Unknown]
